FAERS Safety Report 10074076 (Version 1)
Quarter: 2014Q2

REPORT INFORMATION
  Report Type: Spontaneous
  Country: US (occurrence: US)
  Receive Date: 20140411
  Receipt Date: 20140411
  Transmission Date: 20141212
  Serious: No
  Sender: FDA-Public Use
  Company Number: US-B.I. PHARMACEUTICALS,INC./RIDGEFIELD-2014-BI-14669BP

PATIENT
  Age: 19 Year
  Sex: Male

DRUGS (1)
  1. METACAM ORAL SUSPENSION [Suspect]
     Indication: PRODUCT USED FOR UNKNOWN INDICATION
     Dosage: STRENGTH: 1.5 MG/ML (0.05 MG/DROP), 10ML (DOM)
     Route: 031
     Dates: start: 20140330

REACTIONS (2)
  - Accidental exposure to product [Unknown]
  - Eye irritation [Unknown]
